FAERS Safety Report 9103502 (Version 1)
Quarter: 2013Q1

REPORT INFORMATION
  Report Type: Spontaneous
  Country: JP (occurrence: JP)
  Receive Date: 20130219
  Receipt Date: 20130219
  Transmission Date: 20140127
  Serious: Yes (Other)
  Sender: FDA-Public Use
  Company Number: JP-GLAXOSMITHKLINE-B0852494A

PATIENT
  Sex: Male
  Weight: 49 kg

DRUGS (78)
  1. DERMOVATE [Suspect]
     Indication: CHRONIC GRAFT VERSUS HOST DISEASE
     Route: 061
     Dates: start: 20090312
  2. DERMOVATE [Suspect]
     Indication: CHRONIC GRAFT VERSUS HOST DISEASE
     Route: 061
     Dates: start: 20090330
  3. DERMOVATE [Suspect]
     Indication: CHRONIC GRAFT VERSUS HOST DISEASE
     Route: 061
     Dates: start: 20090430
  4. DERMOVATE [Suspect]
     Indication: CHRONIC GRAFT VERSUS HOST DISEASE
     Route: 061
     Dates: start: 20110519, end: 20110519
  5. PROGRAF [Suspect]
     Indication: IMMUNOSUPPRESSION
     Route: 048
     Dates: start: 20051205, end: 20060301
  6. PROGRAF [Suspect]
     Indication: IMMUNOSUPPRESSION
     Dosage: .5MG FOUR TIMES PER DAY
     Route: 048
     Dates: start: 20060302, end: 20060315
  7. PROGRAF [Suspect]
     Indication: IMMUNOSUPPRESSION
     Route: 048
     Dates: start: 20060316, end: 20060531
  8. PROGRAF [Suspect]
     Indication: IMMUNOSUPPRESSION
     Dosage: .5MG FOUR TIMES PER DAY
     Route: 048
     Dates: start: 20060601, end: 20080430
  9. PROGRAF [Suspect]
     Indication: IMMUNOSUPPRESSION
     Route: 048
     Dates: start: 20080501, end: 20080626
  10. PROGRAF [Suspect]
     Indication: IMMUNOSUPPRESSION
     Route: 048
     Dates: start: 20080627, end: 20090114
  11. PROGRAF [Suspect]
     Indication: IMMUNOSUPPRESSION
     Route: 048
     Dates: start: 20090115, end: 20090311
  12. PROGRAF [Suspect]
     Indication: IMMUNOSUPPRESSION
     Route: 048
     Dates: start: 20090312, end: 20090902
  13. PROGRAF [Suspect]
     Indication: IMMUNOSUPPRESSION
     Route: 048
     Dates: start: 20090903, end: 20090911
  14. PROGRAF [Suspect]
     Indication: IMMUNOSUPPRESSION
     Route: 048
     Dates: start: 20110912
  15. PREDNISOLONE [Suspect]
     Indication: GRAFT VERSUS HOST DISEASE
     Route: 048
     Dates: start: 20051205, end: 20060111
  16. PREDNISOLONE [Suspect]
     Indication: GRAFT VERSUS HOST DISEASE
     Route: 048
     Dates: start: 20060112, end: 20060301
  17. PREDNISOLONE [Suspect]
     Indication: GRAFT VERSUS HOST DISEASE
     Route: 048
     Dates: start: 20060112, end: 20060301
  18. PREDNISOLONE [Suspect]
     Indication: GRAFT VERSUS HOST DISEASE
     Route: 048
     Dates: start: 20060302, end: 20060315
  19. PREDNISOLONE [Suspect]
     Indication: GRAFT VERSUS HOST DISEASE
     Route: 048
     Dates: start: 20060316, end: 20060329
  20. PREDNISOLONE [Suspect]
     Indication: GRAFT VERSUS HOST DISEASE
     Route: 048
     Dates: start: 20060330, end: 20060510
  21. PREDNISOLONE [Suspect]
     Indication: GRAFT VERSUS HOST DISEASE
     Route: 048
     Dates: start: 20060511, end: 20060621
  22. PREDNISOLONE [Suspect]
     Indication: GRAFT VERSUS HOST DISEASE
     Route: 048
     Dates: start: 20060622, end: 20060823
  23. PREDNISOLONE [Suspect]
     Indication: GRAFT VERSUS HOST DISEASE
     Route: 048
     Dates: start: 20060824, end: 20060913
  24. PREDNISOLONE [Suspect]
     Indication: GRAFT VERSUS HOST DISEASE
     Route: 048
     Dates: start: 20060914, end: 20061025
  25. PREDNISOLONE [Suspect]
     Indication: GRAFT VERSUS HOST DISEASE
     Route: 048
     Dates: start: 20061026, end: 20061115
  26. PREDNISOLONE [Suspect]
     Indication: CHRONIC GRAFT VERSUS HOST DISEASE
     Route: 048
     Dates: start: 20061116, end: 20061224
  27. PREDNISOLONE [Suspect]
     Indication: GRAFT VERSUS HOST DISEASE
     Route: 048
     Dates: start: 20061225, end: 20070114
  28. PREDNISOLONE [Suspect]
     Indication: GRAFT VERSUS HOST DISEASE
     Route: 048
     Dates: start: 20070115, end: 20070204
  29. PREDNISOLONE [Suspect]
     Indication: GRAFT VERSUS HOST DISEASE
     Route: 048
     Dates: start: 20070205, end: 20070228
  30. PREDNISOLONE [Suspect]
     Indication: GRAFT VERSUS HOST DISEASE
     Route: 048
     Dates: start: 20070301, end: 20070321
  31. PREDNISOLONE [Suspect]
     Indication: GRAFT VERSUS HOST DISEASE
     Route: 048
     Dates: start: 20070322, end: 20070506
  32. PREDNISOLONE [Suspect]
     Indication: GRAFT VERSUS HOST DISEASE
     Route: 048
     Dates: start: 20070507, end: 20070527
  33. PREDNISOLONE [Suspect]
     Indication: GRAFT VERSUS HOST DISEASE
     Route: 048
     Dates: start: 20070528, end: 20070617
  34. PREDNISOLONE [Suspect]
     Indication: GRAFT VERSUS HOST DISEASE
     Route: 048
     Dates: start: 20070618, end: 20070815
  35. PREDNISOLONE [Suspect]
     Indication: GRAFT VERSUS HOST DISEASE
     Route: 048
     Dates: start: 20070816, end: 20070919
  36. PREDNISOLONE [Suspect]
     Indication: GRAFT VERSUS HOST DISEASE
     Route: 048
     Dates: start: 20070920, end: 20071114
  37. PREDNISOLONE [Suspect]
     Indication: GRAFT VERSUS HOST DISEASE
     Route: 048
     Dates: start: 20071115, end: 20071128
  38. PREDNISOLONE [Suspect]
     Indication: GRAFT VERSUS HOST DISEASE
     Route: 048
     Dates: start: 20071129, end: 20071219
  39. PREDNISOLONE [Suspect]
     Indication: GRAFT VERSUS HOST DISEASE
     Route: 048
     Dates: start: 20071220, end: 20080109
  40. PREDNISOLONE [Suspect]
     Indication: GRAFT VERSUS HOST DISEASE
     Route: 048
     Dates: start: 20080110, end: 20080206
  41. PREDNISOLONE [Suspect]
     Indication: GRAFT VERSUS HOST DISEASE
     Route: 048
     Dates: start: 20080207, end: 20080402
  42. PREDNISOLONE [Suspect]
     Indication: GRAFT VERSUS HOST DISEASE
     Route: 048
     Dates: start: 20080403, end: 20080528
  43. PREDNISOLONE [Suspect]
     Indication: GRAFT VERSUS HOST DISEASE
     Route: 048
     Dates: start: 20080529, end: 20080626
  44. PREDNISOLONE [Suspect]
     Indication: GRAFT VERSUS HOST DISEASE
     Route: 048
     Dates: start: 20080627, end: 20090311
  45. PREDNISOLONE [Suspect]
     Indication: GRAFT VERSUS HOST DISEASE
     Route: 048
     Dates: start: 20090312, end: 20090329
  46. PREDNISOLONE [Suspect]
     Indication: GRAFT VERSUS HOST DISEASE
     Route: 048
     Dates: start: 20090330, end: 20090527
  47. PREDNISOLONE [Suspect]
     Indication: GRAFT VERSUS HOST DISEASE
     Route: 048
     Dates: start: 20090528, end: 20091014
  48. PREDNISOLONE [Suspect]
     Indication: GRAFT VERSUS HOST DISEASE
     Route: 048
     Dates: start: 20091015, end: 20100714
  49. PREDNISOLONE [Suspect]
     Indication: GRAFT VERSUS HOST DISEASE
     Route: 048
     Dates: start: 20100715, end: 20100915
  50. CORTRIL [Concomitant]
     Indication: ADRENAL INSUFFICIENCY
     Route: 048
     Dates: start: 20100916, end: 20110518
  51. CORTRIL [Concomitant]
     Indication: ADRENAL INSUFFICIENCY
     Dosage: 10MG PER DAY
     Route: 048
     Dates: start: 20110519, end: 20110713
  52. CORTRIL [Concomitant]
     Indication: ADRENAL INSUFFICIENCY
     Route: 048
     Dates: start: 20110714, end: 20111116
  53. BONALON [Concomitant]
     Indication: OSTEOPOROSIS
     Route: 048
     Dates: start: 20060911
  54. ZOVIRAX [Concomitant]
     Indication: INFECTION PROPHYLAXIS
     Dosage: 200MG PER DAY
     Route: 048
     Dates: start: 20051205
  55. BAKTAR [Concomitant]
     Indication: ANTIFUNGAL PROPHYLAXIS
     Route: 048
     Dates: start: 20051205, end: 20091125
  56. BAKTAR [Concomitant]
     Indication: ANTIFUNGAL PROPHYLAXIS
     Route: 048
     Dates: start: 20091126
  57. GASTER D [Concomitant]
     Indication: ULCER
     Dosage: 10MG PER DAY
     Route: 048
     Dates: start: 20051205, end: 20070908
  58. GASTER D [Concomitant]
     Indication: ULCER
     Route: 048
     Dates: start: 20070909
  59. AZUNOL [Concomitant]
     Indication: INFECTION PROPHYLAXIS
     Route: 002
     Dates: start: 20071018
  60. THYRADIN S [Concomitant]
     Indication: HYPOTHYROIDISM
     Dosage: 25MCG PER DAY
     Route: 048
     Dates: start: 20101111
  61. PL [Concomitant]
     Indication: NASOPHARYNGITIS
     Dosage: 1G THREE TIMES PER DAY
     Route: 048
     Dates: start: 20061005, end: 20061011
  62. PL [Concomitant]
     Indication: NASOPHARYNGITIS
     Dosage: 1G THREE TIMES PER DAY
     Route: 048
     Dates: start: 20070705, end: 20070711
  63. PL [Concomitant]
     Indication: NASOPHARYNGITIS
     Dosage: 1G THREE TIMES PER DAY
     Route: 048
     Dates: start: 20090430, end: 20090506
  64. PL [Concomitant]
     Indication: NASOPHARYNGITIS
     Dosage: 1G THREE TIMES PER DAY
     Route: 048
     Dates: start: 20110714, end: 20110720
  65. BIOFERMIN [Concomitant]
     Indication: ENTEROCOLITIS
     Dosage: 1G THREE TIMES PER DAY
     Route: 048
     Dates: start: 20090312, end: 20090318
  66. BIOFERMIN [Concomitant]
     Indication: ENTEROCOLITIS
     Dosage: 1G THREE TIMES PER DAY
     Route: 048
     Dates: start: 20090330, end: 20090405
  67. BIOFERMIN [Concomitant]
     Indication: ENTEROCOLITIS
     Dosage: 1G THREE TIMES PER DAY
     Route: 048
     Dates: start: 20090430, end: 20090505
  68. BIOFERMIN [Concomitant]
     Indication: ENTEROCOLITIS
     Dosage: 1G THREE TIMES PER DAY
     Route: 048
     Dates: start: 20090903, end: 20090930
  69. LAC-B [Concomitant]
     Indication: ENTEROCOLITIS
     Dosage: 1G THREE TIMES PER DAY
     Route: 048
     Dates: start: 20090312, end: 20090321
  70. RINDERON-V [Concomitant]
     Indication: RASH
     Route: 061
     Dates: start: 20070816
  71. RINDERON-V [Concomitant]
     Indication: MILIARIA
     Route: 061
     Dates: start: 20100325
  72. RINDERON-V [Concomitant]
     Indication: RASH
     Route: 061
     Dates: start: 20110519
  73. BERIZYM [Concomitant]
     Indication: DYSPEPSIA
     Dosage: 1G THREE TIMES PER DAY
     Route: 048
     Dates: start: 20100715, end: 20100812
  74. BERIZYM [Concomitant]
     Indication: DYSPEPSIA
     Dosage: 1G THREE TIMES PER DAY
     Route: 048
     Dates: start: 20100916, end: 20110113
  75. LIVOSTIN [Concomitant]
     Indication: CONJUNCTIVITIS ALLERGIC
     Route: 031
     Dates: start: 20090312
  76. LIVOSTIN [Concomitant]
     Indication: CONJUNCTIVITIS ALLERGIC
     Route: 031
     Dates: start: 20100325
  77. LIVOSTIN [Concomitant]
     Indication: CONJUNCTIVITIS ALLERGIC
     Route: 031
     Dates: start: 20110317
  78. MAGNESIUM OXIDE [Concomitant]
     Indication: CONSTIPATION
     Route: 048
     Dates: start: 20080407, end: 20110317

REACTIONS (3)
  - Secondary adrenocortical insufficiency [Unknown]
  - Osteoporosis [Unknown]
  - Hypothyroidism [Unknown]
